FAERS Safety Report 4775729-6 (Version None)
Quarter: 2005Q3

REPORT INFORMATION
  Report Type: 
  Country: None (occurrence: None)
  Receive Date: 20050922
  Receipt Date: 20050908
  Transmission Date: 20060218
  Serious: Yes (Disabling)
  Sender: FDA-Public Use
  Company Number: SE-AMGEN-UK149710

PATIENT
  Sex: Female

DRUGS (5)
  1. ARANESP [Suspect]
     Indication: DRUG USE FOR UNKNOWN INDICATION
     Route: 058
     Dates: start: 20041207
  2. ANTIBIOTICS [Concomitant]
     Route: 065
  3. VALTREX [Concomitant]
     Route: 065
  4. CORTISONE ACETATE TAB [Concomitant]
     Route: 065
  5. ANTILYMPHOCYTE GLOBULIN [Concomitant]
     Route: 065

REACTIONS (1)
  - APLASIA PURE RED CELL [None]
